FAERS Safety Report 12991510 (Version 1)
Quarter: 2016Q4

REPORT INFORMATION
  Report Type: Report from Study
  Country: MX (occurrence: MX)
  Receive Date: 20161201
  Receipt Date: 20161201
  Transmission Date: 20170207
  Serious: Yes (Other)
  Sender: FDA-Public Use
  Company Number: MX-ELI_LILLY_AND_COMPANY-MX201611008379

PATIENT
  Sex: Male

DRUGS (4)
  1. ONDANSETRON [Concomitant]
     Active Substance: ONDANSETRON
     Indication: PREMEDICATION
     Dosage: UNK
     Dates: start: 20161031
  2. CETUXIMAB [Suspect]
     Active Substance: CETUXIMAB
     Indication: LARYNGEAL CANCER
     Dosage: 800 MG, UNKNOWN
     Route: 042
     Dates: start: 20161031
  3. DEXAMETHASONE. [Concomitant]
     Active Substance: DEXAMETHASONE
     Indication: PREMEDICATION
     Dosage: UNK
     Dates: start: 20161031
  4. AVAPENA [Concomitant]
     Indication: PREMEDICATION
     Dosage: UNK
     Dates: start: 20161031

REACTIONS (4)
  - Syncope [Unknown]
  - Respiratory distress [Unknown]
  - Ocular hyperaemia [Unknown]
  - Nausea [Unknown]

NARRATIVE: CASE EVENT DATE: 20161031
